FAERS Safety Report 11338792 (Version 1)
Quarter: 2015Q3

REPORT INFORMATION
  Report Type: Spontaneous
  Country: US (occurrence: US)
  Receive Date: 20150803
  Receipt Date: 20150803
  Transmission Date: 20151125
  Serious: No
  Sender: FDA-Public Use
  Company Number: US-ELI_LILLY_AND_COMPANY-US200805005828

PATIENT
  Age: 6 Year
  Sex: Male
  Weight: 22.68 kg

DRUGS (2)
  1. STRATTERA [Suspect]
     Active Substance: ATOMOXETINE HYDROCHLORIDE
     Dosage: 25 MG, QOD
  2. STRATTERA [Suspect]
     Active Substance: ATOMOXETINE HYDROCHLORIDE
     Dosage: 25 MG, UNK

REACTIONS (8)
  - Anxiety [Unknown]
  - Fatigue [Unknown]
  - Personality change [Unknown]
  - Tooth extraction [Unknown]
  - Mood swings [Unknown]
  - Aggression [Unknown]
  - Crying [Unknown]
  - Irritability [Unknown]

NARRATIVE: CASE EVENT DATE: 20080527
